FAERS Safety Report 4488681-8 (Version None)
Quarter: 2004Q4

REPORT INFORMATION
  Report Type: 
  Country: None (occurrence: None)
  Receive Date: 20041025
  Receipt Date: 20041012
  Transmission Date: 20050328
  Serious: Yes (Other)
  Sender: FDA-Public Use
  Company Number: CA-2004-028113

PATIENT
  Sex: Male

DRUGS (1)
  1. FLUDARA (FLUDRABINE PHOSPHATE) AMPULE [Suspect]
     Dates: end: 20040301

REACTIONS (4)
  - LYMPHOMA [None]
  - MALIGNANT NEOPLASM PROGRESSION [None]
  - METASTASES TO MENINGES [None]
  - MYELITIS [None]
